FAERS Safety Report 4632663-X (Version None)
Quarter: 2005Q2

REPORT INFORMATION
  Report Type: 
  Country: None (occurrence: None)
  Receive Date: 20050331
  Receipt Date: 20041019
  Transmission Date: 20051028
  Serious: Yes (Other)
  Sender: FDA-Public Use
  Company Number: 200415059BCC

PATIENT
  Sex: Male
  Weight: 81.6475 kg

DRUGS (3)
  1. ALEVE (CAPLET) [Suspect]
     Indication: ROTATOR CUFF SYNDROME
     Dosage: 440 MG, HS, ORAL
     Route: 048
  2. ALEVE (CAPLET) [Suspect]
     Indication: SHOULDER PAIN
     Dosage: 440 MG, HS, ORAL
     Route: 048
  3. PROVENTIL [Concomitant]

REACTIONS (1)
  - HAEMORRHAGE URINARY TRACT [None]
